FAERS Safety Report 17419886 (Version 1)
Quarter: 2020Q1

REPORT INFORMATION
  Report Type: Spontaneous
  Country: JO (occurrence: JO)
  Receive Date: 20200214
  Receipt Date: 20200214
  Transmission Date: 20200409
  Serious: Yes (Other)
  Sender: FDA-Public Use
  Company Number: JO-TAKEDA-2019TJP024097

PATIENT
  Age: 44 Year
  Sex: Male

DRUGS (2)
  1. THYROXINE [Concomitant]
     Active Substance: LEVOTHYROXINE
     Indication: PRODUCT USED FOR UNKNOWN INDICATION
     Dosage: UNK
     Route: 065
  2. ACTOS MET [Suspect]
     Active Substance: METFORMIN HYDROCHLORIDE\PIOGLITAZONE HYDROCHLORIDE
     Indication: DIABETES MELLITUS
     Dosage: 15MG, 850MG
     Route: 048
     Dates: start: 201905, end: 20191007

REACTIONS (3)
  - Bladder cancer [Unknown]
  - Abdominal pain lower [Unknown]
  - Cystitis [Unknown]
